FAERS Safety Report 11741580 (Version 2)
Quarter: 2015Q4

REPORT INFORMATION
  Report Type: Spontaneous
  Country: BR (occurrence: BR)
  Receive Date: 20151116
  Receipt Date: 20151210
  Transmission Date: 20160304
  Serious: Yes (Other)
  Sender: FDA-Public Use
  Company Number: BR-ROCHE-1660926

PATIENT
  Sex: Female

DRUGS (3)
  1. LUCENTIS [Suspect]
     Active Substance: RANIBIZUMAB
     Indication: PRODUCT USED FOR UNKNOWN INDICATION
     Dosage: 0.23 ML IN THE LEFT EYE
     Route: 050
     Dates: start: 20151008
  2. ZINC SULFATE [Concomitant]
     Active Substance: ZINC SULFATE\ZINC SULFATE ANHYDROUS
  3. MAXIFLOX D [Concomitant]

REACTIONS (10)
  - Age-related macular degeneration [Recovering/Resolving]
  - Headache [Unknown]
  - Application site pain [Unknown]
  - Insomnia [Unknown]
  - Anxiety [Unknown]
  - Injury associated with device [Unknown]
  - Weight increased [Unknown]
  - Nervous system disorder [Unknown]
  - Eye pain [Not Recovered/Not Resolved]
  - Wrong technique in product usage process [Unknown]
